FAERS Safety Report 20061791 (Version 2)
Quarter: 2021Q4

REPORT INFORMATION
  Report Type: Report from Study
  Country: DE (occurrence: None)
  Receive Date: 20211112
  Receipt Date: 20211115
  Transmission Date: 20220303
  Serious: Yes (Hospitalization)
  Sender: FDA-Public Use
  Company Number: DE-ROCHE-2952764

PATIENT
  Age: 47 Year
  Sex: Female
  Weight: 61 kg

DRUGS (1)
  1. ATEZOLIZUMAB [Suspect]
     Active Substance: ATEZOLIZUMAB
     Indication: Non-Hodgkin^s lymphoma
     Dosage: ON 12/OCT/2021, SHE RECEIVED MOST RECENT DOSE OD ATEZOLIZUMAB PRIOR TO THE EVENT.
     Route: 041
     Dates: start: 20210921, end: 20211026

REACTIONS (1)
  - Extradural haematoma [Recovered/Resolved]

NARRATIVE: CASE EVENT DATE: 20211031
